FAERS Safety Report 25182030 (Version 1)
Quarter: 2025Q2

REPORT INFORMATION
  Report Type: Spontaneous
  Country: US (occurrence: US)
  Receive Date: 20250410
  Receipt Date: 20250410
  Transmission Date: 20250716
  Serious: No
  Sender: OPTINOSE INC
  Company Number: US-OptiNose US, Inc-2024OPT000001

PATIENT
  Age: 67 Year
  Sex: Male

DRUGS (1)
  1. XHANCE [Suspect]
     Active Substance: FLUTICASONE PROPIONATE
     Indication: Off label use
     Dates: start: 202309

REACTIONS (9)
  - Feeling abnormal [Unknown]
  - Influenza [Unknown]
  - Sinus disorder [Unknown]
  - Off label use [Unknown]
  - Nasal congestion [Unknown]
  - Headache [Unknown]
  - Hypersensitivity [Unknown]
  - Product dose omission issue [Unknown]
  - Product container issue [Unknown]

NARRATIVE: CASE EVENT DATE: 20231231
